FAERS Safety Report 6867399-8 (Version None)
Quarter: 2010Q3

REPORT INFORMATION
  Report Type: 
  Country: None (occurrence: None)
  Receive Date: 20100722
  Receipt Date: 20100719
  Transmission Date: 20110219
  Serious: Yes (Hospitalization)
  Sender: FDA-Public Use
  Company Number: FR-BRISTOL-MYERS SQUIBB COMPANY-15200058

PATIENT
  Age: 69 Year
  Sex: Male

DRUGS (10)
  1. PRAVIGARD PAC (COPACKAGED) [Suspect]
     Indication: HYPERCHOLESTEROLAEMIA
     Dosage: 1 D/F=1 TAB
     Route: 048
     Dates: end: 20100621
  2. NABUMETONE [Suspect]
     Indication: ARTHRITIS
     Route: 048
     Dates: start: 20090606, end: 20090613
  3. EXOMUC [Suspect]
     Indication: BRONCHITIS
     Route: 048
     Dates: start: 20090606, end: 20090613
  4. CEFUROXIME [Suspect]
     Indication: BRONCHITIS
     Dosage: CEFUROXIME AREOW
     Route: 048
     Dates: start: 20090606, end: 20090614
  5. AVAMYS [Suspect]
     Indication: BRONCHITIS
     Dosage: 1 D/F=2 SPRAYS
     Route: 045
     Dates: start: 20090606, end: 20090706
  6. COKENZEN [Concomitant]
     Dosage: 1 D/F=8 MG/12.5 MG
  7. MODOPAR [Concomitant]
  8. REQUIP [Concomitant]
  9. SERETIDE [Concomitant]
     Dosage: SERETIDE DISKUS
  10. OGASTORO [Concomitant]

REACTIONS (1)
  - ASTHMA [None]
